FAERS Safety Report 12661405 (Version 2)
Quarter: 2016Q3

REPORT INFORMATION
  Report Type: Spontaneous
  Country: US (occurrence: US)
  Receive Date: 20160817
  Receipt Date: 20160901
  Transmission Date: 20161109
  Serious: No
  Sender: FDA-Public Use
  Company Number: US-RELYPSA-RLY2016000959

PATIENT
  Age: 54 Year
  Sex: Female

DRUGS (15)
  1. MIRALAX [Concomitant]
     Active Substance: POLYETHYLENE GLYCOL 3350
  2. NORCO [Concomitant]
     Active Substance: ACETAMINOPHEN\HYDROCODONE BITARTRATE
  3. ASPIRIN                            /00002701/ [Concomitant]
     Active Substance: ASPIRIN
  4. FERROUS SULFATE. [Concomitant]
     Active Substance: FERROUS SULFATE
  5. LASIX [Concomitant]
     Active Substance: FUROSEMIDE
  6. NEURONTIN [Concomitant]
     Active Substance: GABAPENTIN
  7. ZANTAC [Concomitant]
     Active Substance: RANITIDINE HYDROCHLORIDE
  8. VELTASSA [Suspect]
     Active Substance: PATIROMER
     Indication: HYPERKALAEMIA
     Dosage: 8.4 G, QD
     Route: 048
     Dates: start: 20160503
  9. BYSTOLIC [Concomitant]
     Active Substance: NEBIVOLOL HYDROCHLORIDE
  10. TOVIAZ [Concomitant]
     Active Substance: FESOTERODINE FUMARATE
  11. TRESIBA [Concomitant]
     Active Substance: INSULIN DEGLUDEC
  12. NOVOLOG [Concomitant]
     Active Substance: INSULIN ASPART
  13. ALLOPURINOL. [Concomitant]
     Active Substance: ALLOPURINOL
  14. CALCITRIOL. [Concomitant]
     Active Substance: CALCITRIOL
  15. HYDRALAZINE HCL [Concomitant]
     Active Substance: HYDRALAZINE HYDROCHLORIDE

REACTIONS (2)
  - Headache [Unknown]
  - Constipation [Unknown]

NARRATIVE: CASE EVENT DATE: 20160606
